FAERS Safety Report 24908159 (Version 1)
Quarter: 2025Q1

REPORT INFORMATION
  Report Type: Spontaneous
  Country: IN (occurrence: IN)
  Receive Date: 20250131
  Receipt Date: 20250131
  Transmission Date: 20250408
  Serious: Yes (Other)
  Sender: SANDOZ
  Company Number: IN-SANDOZ-SDZ2025IN005090

PATIENT
  Sex: Male

DRUGS (1)
  1. TACROLIMUS [Suspect]
     Active Substance: TACROLIMUS
     Indication: Renal transplant
     Dosage: 0.5 MG, QD
     Route: 048

REACTIONS (7)
  - Transplant dysfunction [Unknown]
  - Bowen^s disease [Unknown]
  - Modified radical mastectomy [Unknown]
  - Type 2 diabetes mellitus [Unknown]
  - Skin lesion [Unknown]
  - Diabetic nephropathy [Unknown]
  - Hypertension [Unknown]
